FAERS Safety Report 16307944 (Version 1)
Quarter: 2019Q2

REPORT INFORMATION
  Report Type: Spontaneous
  Country: FR (occurrence: FR)
  Receive Date: 20190514
  Receipt Date: 20190514
  Transmission Date: 20190711
  Serious: Yes (Hospitalization, Other)
  Sender: FDA-Public Use
  Company Number: FR-AUROBINDO-AUR-APL-2019-025307

PATIENT

DRUGS (4)
  1. TERCIAN [Suspect]
     Active Substance: CYAMEMAZINE
     Indication: BIPOLAR DISORDER
     Dosage: 5 DOSAGE FORM, DAILY
     Route: 048
     Dates: end: 20190409
  2. RISPERIDONE. [Suspect]
     Active Substance: RISPERIDONE
     Indication: BIPOLAR DISORDER
     Dosage: 12 MILLIGRAM, DAILY
     Route: 048
     Dates: end: 20190409
  3. LEPTICUR [Interacting]
     Active Substance: TROPATEPINE HYDROCHLORIDE
     Indication: PARKINSONISM
     Dosage: 10 MILLIGRAM, DAILY
     Route: 048
     Dates: end: 20190409
  4. TERCIAN [Suspect]
     Active Substance: CYAMEMAZINE
     Indication: BIPOLAR DISORDER
     Dosage: 200 GTT DROPS, DAILY
     Route: 048
     Dates: start: 20190330, end: 20190409

REACTIONS (4)
  - Constipation [Recovered/Resolved]
  - Hyperthermia [Recovered/Resolved]
  - Urinary retention [Recovered/Resolved]
  - Hepatocellular injury [Recovering/Resolving]

NARRATIVE: CASE EVENT DATE: 20190408
